FAERS Safety Report 8127673-4 (Version None)
Quarter: 2012Q1

REPORT INFORMATION
  Report Type: 
  Country: None (occurrence: None)
  Receive Date: 20120210
  Receipt Date: 20120207
  Transmission Date: 20120608
  Serious: Yes (Life-Threatening)
  Sender: FDA-Public Use
  Company Number: JP-PFIZER INC-2012033804

PATIENT
  Age: 78 Year
  Sex: Female

DRUGS (9)
  1. ASPIRIN [Concomitant]
  2. ALLEGRA [Concomitant]
  3. ALLOPURINOL [Concomitant]
  4. DAIKENTYUTO [Concomitant]
  5. METHYCOBAL [Concomitant]
  6. AVAPRO [Concomitant]
  7. LYRICA [Suspect]
     Indication: NEURALGIA
     Dosage: 25 MG, 1X/DAY
     Route: 048
     Dates: start: 20120130
  8. LYRICA [Suspect]
     Dosage: 25 MG IN THE MORNING AND 75 MG AT NIGHT
     Dates: start: 20120131, end: 20120207
  9. MAGMITT [Concomitant]

REACTIONS (4)
  - FACE INJURY [None]
  - PARKINSONIAN GAIT [None]
  - LIMB INJURY [None]
  - FALL [None]
